FAERS Safety Report 10329359 (Version 1)
Quarter: 2014Q3

REPORT INFORMATION
  Report Type: Spontaneous
  Country: FI (occurrence: FI)
  Receive Date: 20140721
  Receipt Date: 20140721
  Transmission Date: 20150326
  Serious: Yes (Hospitalization, Other)
  Sender: FDA-Public Use
  Company Number: PHHY2014FI087821

PATIENT
  Age: 61 Year
  Sex: Female

DRUGS (9)
  1. LEPONEX [Suspect]
     Active Substance: CLOZAPINE
     Dosage: 75 MG, DAILY
     Dates: start: 20140607, end: 20140616
  2. LEPONEX [Suspect]
     Active Substance: CLOZAPINE
     Dosage: 225 MG, DAILY
     Dates: start: 20140704, end: 20140708
  3. LEPONEX [Suspect]
     Active Substance: CLOZAPINE
     Dosage: 125 MG, DAILY
     Dates: start: 20140623, end: 20140624
  4. LEPONEX [Suspect]
     Active Substance: CLOZAPINE
     Indication: OFF LABEL USE
     Dosage: 50 MG, DAILY
     Dates: start: 20140602, end: 20140606
  5. LEPONEX [Suspect]
     Active Substance: CLOZAPINE
     Dosage: 150 MG, DAILY
     Dates: start: 20140625, end: 20140625
  6. LEPONEX [Suspect]
     Active Substance: CLOZAPINE
     Indication: SCHIZOAFFECTIVE DISORDER
     Dosage: 25 MG, DAILY
     Dates: start: 20140527, end: 20140601
  7. LEPONEX [Suspect]
     Active Substance: CLOZAPINE
     Dosage: 175 MG, DAILY
     Dates: start: 20140626, end: 20140629
  8. LEPONEX [Suspect]
     Active Substance: CLOZAPINE
     Dosage: 100 MG, DAILY
     Dates: start: 20140617, end: 20140622
  9. LEPONEX [Suspect]
     Active Substance: CLOZAPINE
     Dosage: 200 MG, DAILY
     Dates: start: 20140630, end: 20140703

REACTIONS (8)
  - Abscess [Not Recovered/Not Resolved]
  - Pain of skin [Not Recovered/Not Resolved]
  - Body temperature increased [Not Recovered/Not Resolved]
  - Erythema [Not Recovered/Not Resolved]
  - Off label use [Recovered/Resolved]
  - Subcutaneous abscess [Not Recovered/Not Resolved]
  - Neutrophil count decreased [Not Recovered/Not Resolved]
  - Skin infection [Not Recovered/Not Resolved]

NARRATIVE: CASE EVENT DATE: 20140527
